FAERS Safety Report 17733777 (Version 1)
Quarter: 2020Q2

REPORT INFORMATION
  Report Type: Report from Study
  Country: US (occurrence: US)
  Receive Date: 20200501
  Receipt Date: 20200501
  Transmission Date: 20200714
  Serious: Yes (Other)
  Sender: FDA-Public Use
  Company Number: US-BAYER-2020-072346

PATIENT
  Age: 28 Year
  Sex: Female

DRUGS (1)
  1. ADEMPAS [Suspect]
     Active Substance: RIOCIGUAT
     Indication: PULMONARY ARTERIAL HYPERTENSION
     Dosage: 0.5 MG, TID
     Route: 048
     Dates: start: 20200313

REACTIONS (4)
  - Headache [None]
  - Dizziness [None]
  - Blood pressure fluctuation [None]
  - Fatigue [None]

NARRATIVE: CASE EVENT DATE: 202003
